FAERS Safety Report 7810043-3 (Version None)
Quarter: 2011Q4

REPORT INFORMATION
  Report Type: 
  Country: None (occurrence: None)
  Receive Date: 20111012
  Receipt Date: 20110812
  Transmission Date: 20120403
  Serious: No
  Sender: FDA-Public Use
  Company Number: US-GLAXOSMITHKLINE-A0940905A

PATIENT
  Age: 67 Year
  Sex: Male

DRUGS (8)
  1. CITALOPRAM [Concomitant]
  2. UNKNOWN MEDICATION [Concomitant]
  3. SIMVASTATIN [Concomitant]
  4. NIASPAN [Concomitant]
  5. JALYN [Suspect]
     Indication: BENIGN PROSTATIC HYPERPLASIA
     Dosage: 1CAP PER DAY
     Route: 048
     Dates: start: 20110527, end: 20110804
  6. LISINOPRIL [Concomitant]
  7. TRAVATAN [Concomitant]
  8. ASPIRIN [Concomitant]

REACTIONS (1)
  - ENURESIS [None]
